FAERS Safety Report 6304121-8 (Version None)
Quarter: 2009Q3

REPORT INFORMATION
  Report Type: 
  Country: None (occurrence: None)
  Receive Date: 20090806
  Receipt Date: 20090803
  Transmission Date: 20100115
  Serious: Yes (Hospitalization)
  Sender: FDA-Public Use
  Company Number: 2009SP005597

PATIENT
  Age: 36 Year
  Sex: Female

DRUGS (9)
  1. TEMOZOLOMIDE [Suspect]
     Indication: GLIOBLASTOMA MULTIFORME
     Dosage: 75 MG/M2;PO
     Route: 048
     Dates: start: 20081215, end: 20090109
  2. BEVACIZUMAB [Suspect]
     Indication: GLIOBLASTOMA MULTIFORME
     Dosage: 10 MG/KG;QOW
     Dates: start: 20081229
  3. DECADRON [Concomitant]
  4. OXYCODONE [Concomitant]
  5. COLACE [Concomitant]
  6. KEPPRA [Concomitant]
  7. PAXIL [Concomitant]
  8. RANITIDINE [Concomitant]
  9. AMBIEN [Concomitant]

REACTIONS (4)
  - HEADACHE [None]
  - INTRACRANIAL HYPOTENSION [None]
  - OSTEOMYELITIS [None]
  - POST PROCEDURAL COMPLICATION [None]
